FAERS Safety Report 18124661 (Version 1)
Quarter: 2020Q3

REPORT INFORMATION
  Report Type: Spontaneous
  Country: US (occurrence: US)
  Receive Date: 20200807
  Receipt Date: 20200807
  Transmission Date: 20201103
  Serious: No
  Sender: FDA-Public Use
  Company Number: US-MERZ PHARMACEUTICALS GMBH-20-02621

PATIENT
  Sex: Female

DRUGS (1)
  1. XEOMIN [Suspect]
     Active Substance: INCOBOTULINUMTOXINA
     Indication: PRODUCT USED FOR UNKNOWN INDICATION

REACTIONS (8)
  - Ocular discomfort [Unknown]
  - Eye contusion [Unknown]
  - Lacrimation increased [Unknown]
  - Impaired work ability [Unknown]
  - Visual impairment [Unknown]
  - Extraocular muscle disorder [Unknown]
  - Contusion [Unknown]
  - Swelling [Unknown]
